FAERS Safety Report 15940034 (Version 1)
Quarter: 2019Q1

REPORT INFORMATION
  Report Type: Spontaneous
  Country: US (occurrence: US)
  Receive Date: 20190208
  Receipt Date: 20190208
  Transmission Date: 20190417
  Serious: No
  Sender: FDA-Public Use
  Company Number: US-BAYER-2019-019902

PATIENT
  Age: 37 Year
  Sex: Female

DRUGS (1)
  1. SORAFENIB (RAF KINASE INHIBITOR) [Suspect]
     Active Substance: SORAFENIB
     Indication: GIANT CELL TUMOUR OF TENDON SHEATH
     Dosage: UNK
     Dates: start: 2007

REACTIONS (2)
  - Product use in unapproved indication [None]
  - Off label use [None]
